FAERS Safety Report 19714627 (Version 6)
Quarter: 2022Q1

REPORT INFORMATION
  Report Type: Report from Study
  Country: US (occurrence: US)
  Receive Date: 20210818
  Receipt Date: 20220322
  Transmission Date: 20220423
  Serious: Yes (Hospitalization)
  Sender: FDA-Public Use
  Company Number: US-Ipsen Biopharmaceuticals, Inc.-2021-19876

PATIENT
  Age: 56 Year
  Sex: Female

DRUGS (1)
  1. SOMATULINE DEPOT [Suspect]
     Active Substance: LANREOTIDE ACETATE
     Indication: Neuroendocrine tumour
     Dosage: 120MG/ 0.5ML, EVERY FOUR WEEKS, DEEP SUBCUTANEOUS
     Route: 058
     Dates: start: 20210812

REACTIONS (10)
  - Pain [Recovering/Resolving]
  - Pancreatitis [Not Recovered/Not Resolved]
  - Neoplasm progression [Recovering/Resolving]
  - Abdominal pain upper [Recovered/Resolved]
  - Crying [Unknown]
  - Pain [Recovered/Resolved]
  - Dizziness [Unknown]
  - Constipation [Recovering/Resolving]
  - Abdominal rigidity [Recovering/Resolving]
  - Drug ineffective [Unknown]

NARRATIVE: CASE EVENT DATE: 20210101
